FAERS Safety Report 10158638 (Version 1)
Quarter: 2014Q2

REPORT INFORMATION
  Report Type: Spontaneous
  Country: JP (occurrence: JP)
  Receive Date: 20140508
  Receipt Date: 20140508
  Transmission Date: 20141212
  Serious: Yes (Other)
  Sender: FDA-Public Use
  Company Number: JP-ROCHE-1394498

PATIENT
  Age: 62 Year
  Sex: Female

DRUGS (3)
  1. AVASTIN [Suspect]
     Indication: PRODUCT USED FOR UNKNOWN INDICATION
     Dosage: DOSAGE IS UNCERTAIN.
     Route: 041
  2. TEMODAL [Concomitant]
     Dosage: DOSAGE IS UNCERTAIN.
     Route: 048
  3. INTEBAN [Concomitant]
     Dosage: DOSAGE IS UNCERTAIN.
     Route: 054

REACTIONS (1)
  - Tubulointerstitial nephritis [Unknown]
